FAERS Safety Report 11452596 (Version 1)
Quarter: 2015Q3

REPORT INFORMATION
  Report Type: Spontaneous
  Country: US (occurrence: US)
  Receive Date: 20150903
  Receipt Date: 20150903
  Transmission Date: 20151125
  Serious: Yes (Other)
  Sender: FDA-Public Use
  Company Number: US-ROCHE-1045368

PATIENT
  Age: 42 Year
  Sex: Male

DRUGS (2)
  1. PEGASYS [Suspect]
     Active Substance: PEGINTERFERON ALFA-2A
     Indication: CHRONIC HEPATITIS C
     Route: 058
     Dates: start: 20120127, end: 20120217
  2. RIBAVIRIN. [Suspect]
     Active Substance: RIBAVIRIN
     Indication: CHRONIC HEPATITIS C
     Route: 048
     Dates: start: 20120123, end: 20120217

REACTIONS (15)
  - Nerve injury [Not Recovered/Not Resolved]
  - Eye disorder [Unknown]
  - Head discomfort [Unknown]
  - Pyrexia [Unknown]
  - Hallucination [Unknown]
  - Abnormal dreams [Unknown]
  - Speech disorder [Unknown]
  - Hearing impaired [Unknown]
  - Feeling abnormal [Unknown]
  - Respiratory rate increased [Unknown]
  - Tinnitus [Unknown]
  - Deafness [Not Recovered/Not Resolved]
  - Pneumonia [Unknown]
  - Dyspnoea [Unknown]
  - Panic attack [Unknown]

NARRATIVE: CASE EVENT DATE: 20120223
